FAERS Safety Report 18654474 (Version 2)
Quarter: 2020Q4

REPORT INFORMATION
  Report Type: Spontaneous
  Country: GB (occurrence: GB)
  Receive Date: 20201223
  Receipt Date: 20201230
  Transmission Date: 20210114
  Serious: Yes (Hospitalization, Disabling, Other)
  Sender: FDA-Public Use
  Company Number: GB-009507513-2012GBR010267

PATIENT
  Age: 25 Year
  Sex: Male
  Weight: 70 kg

DRUGS (1)
  1. ELOCON [Suspect]
     Active Substance: MOMETASONE FUROATE
     Indication: DERMATITIS ATOPIC
     Dosage: UNK, USED SPARINGLY ON LIMBS
     Route: 061
     Dates: start: 20140801, end: 20191220

REACTIONS (6)
  - Erythema [Not Recovered/Not Resolved]
  - Pruritus [Not Recovered/Not Resolved]
  - Skin burning sensation [Unknown]
  - Skin weeping [Unknown]
  - Oedema peripheral [Unknown]
  - Steroid withdrawal syndrome [Unknown]

NARRATIVE: CASE EVENT DATE: 20191220
